FAERS Safety Report 22117894 (Version 1)
Quarter: 2023Q1

REPORT INFORMATION
  Report Type: Spontaneous
  Country: US (occurrence: US)
  Receive Date: 20230321
  Receipt Date: 20230321
  Transmission Date: 20230418
  Serious: Yes (Other)
  Sender: FDA-Public Use
  Company Number: US-AMGEN-USASP2023046270

PATIENT
  Age: 27 Year
  Sex: Male

DRUGS (1)
  1. BEVACIZUMAB [Suspect]
     Active Substance: BEVACIZUMAB
     Indication: Meningioma
     Route: 065

REACTIONS (3)
  - Focal segmental glomerulosclerosis [Recovering/Resolving]
  - Nodule [Recovering/Resolving]
  - Off label use [Unknown]
